FAERS Safety Report 5841105-8 (Version None)
Quarter: 2008Q3

REPORT INFORMATION
  Report Type: 
  Country: None (occurrence: None)
  Receive Date: 20080811
  Receipt Date: 20080811
  Transmission Date: 20090109
  Serious: Yes (Hospitalization)
  Sender: FDA-Public Use
  Company Number: None

PATIENT
  Sex: Female
  Weight: 46.2669 kg

DRUGS (1)
  1. CARBOPLATIN [Suspect]
     Indication: NON-SMALL CELL LUNG CANCER
     Dosage: 410 MG X1 IV
     Route: 042

REACTIONS (4)
  - BLOOD PRESSURE DECREASED [None]
  - CARDIAC DISORDER [None]
  - DYSPNOEA [None]
  - FLUSHING [None]
